FAERS Safety Report 4633085-8 (Version None)
Quarter: 2005Q2

REPORT INFORMATION
  Report Type: 
  Country: None (occurrence: None)
  Receive Date: 20050411
  Receipt Date: 20050411
  Transmission Date: 20051028
  Serious: Yes (Hospitalization)
  Sender: FDA-Public Use
  Company Number: None

PATIENT
  Age: 40 Year
  Sex: Male
  Weight: 70 kg

DRUGS (7)
  1. FLUOROURACIL [Suspect]
     Indication: ANAL CANCER
     Dates: start: 20030609, end: 20030707
  2. MITOMYCIN [Suspect]
     Dates: start: 20030609, end: 20030707
  3. AMPICILLIN [Concomitant]
  4. GENTAMICIN [Concomitant]
  5. CLYNDAMYCIN [Concomitant]
  6. VICODIN [Concomitant]
  7. MORPHINE [Concomitant]

REACTIONS (4)
  - INDURATION [None]
  - OEDEMA GENITAL [None]
  - PENILE INFECTION [None]
  - PERIRECTAL ABSCESS [None]
